FAERS Safety Report 6249769-4 (Version None)
Quarter: 2009Q2

REPORT INFORMATION
  Report Type: 
  Country: None (occurrence: None)
  Receive Date: 20090629
  Receipt Date: 20090623
  Transmission Date: 20091009
  Serious: Yes (Hospitalization)
  Sender: FDA-Public Use
  Company Number: BE-ABBOTT-08P-013-0481243-00

PATIENT
  Sex: Female

DRUGS (4)
  1. KALETRA [Suspect]
     Indication: HIV INFECTION
     Dates: start: 20071218, end: 20080201
  2. KALETRA [Suspect]
     Dates: start: 20080428
  3. KIVEXA [Concomitant]
     Indication: HIV INFECTION
     Dates: start: 20071218, end: 20080201
  4. KIVEXA [Concomitant]
     Dates: start: 20080428

REACTIONS (2)
  - ADENOMYOSIS [None]
  - HYPERTRIGLYCERIDAEMIA [None]
